FAERS Safety Report 9147945 (Version 1)
Quarter: 2013Q1

REPORT INFORMATION
  Report Type: Spontaneous
  Country: US (occurrence: US)
  Receive Date: 20130307
  Receipt Date: 20130307
  Transmission Date: 20140127
  Serious: No
  Sender: FDA-Public Use
  Company Number: US-009507513-1210USA007872

PATIENT
  Sex: Female

DRUGS (1)
  1. COZAAR [Suspect]
     Dosage: 0.5 DF, BID
     Route: 048
     Dates: start: 200810

REACTIONS (4)
  - Wrong technique in drug usage process [Unknown]
  - Product odour abnormal [Unknown]
  - Product quality issue [Unknown]
  - No adverse event [Unknown]
